FAERS Safety Report 5766495-6 (Version None)
Quarter: 2008Q2

REPORT INFORMATION
  Report Type: 
  Country: None (occurrence: None)
  Receive Date: 20080606
  Receipt Date: 20080523
  Transmission Date: 20081010
  Serious: Yes (Hospitalization)
  Sender: FDA-Public Use
  Company Number: CIP08000970

PATIENT
  Age: 78 Year
  Sex: Female

DRUGS (1)
  1. ACTONEL [Suspect]
     Indication: OSTEOPOROSIS
     Dosage: 2.5 MGDAILY, ORAL
     Route: 048
     Dates: start: 20061113, end: 20061216

REACTIONS (2)
  - PLEURAL EFFUSION [None]
  - PULMONARY OEDEMA [None]
